FAERS Safety Report 9526907 (Version 1)
Quarter: 2013Q3

REPORT INFORMATION
  Report Type: Spontaneous
  Country: JP (occurrence: JP)
  Receive Date: 20130916
  Receipt Date: 20130916
  Transmission Date: 20140515
  Serious: Yes (Hospitalization)
  Sender: FDA-Public Use
  Company Number: PHHY2013JP100636

PATIENT
  Sex: Female

DRUGS (2)
  1. CARBOPLATIN [Suspect]
     Dosage: 700 MG, UNK
  2. PACLITAXEL [Suspect]

REACTIONS (4)
  - Posterior reversible encephalopathy syndrome [Unknown]
  - Vomiting [Unknown]
  - Convulsion [Unknown]
  - Central nervous system lesion [Unknown]
